FAERS Safety Report 13638377 (Version 1)
Quarter: 2017Q2

REPORT INFORMATION
  Report Type: Spontaneous
  Country: FR (occurrence: FR)
  Receive Date: 20170609
  Receipt Date: 20170609
  Transmission Date: 20170830
  Serious: Yes (Hospitalization)
  Sender: FDA-Public Use
  Company Number: FR-BAYER-2017-104656

PATIENT
  Age: 40 Year
  Sex: Female

DRUGS (1)
  1. MIRENA [Suspect]
     Active Substance: LEVONORGESTREL
     Dosage: 20 MCG/24HR, CONT
     Route: 015
     Dates: start: 20130808, end: 20170315

REACTIONS (23)
  - Abdominal distension [Recovered/Resolved]
  - Anxiety [Recovered/Resolved]
  - Insomnia [Recovered/Resolved]
  - Arthralgia [Recovered/Resolved]
  - Fatigue [Recovered/Resolved]
  - Hot flush [Recovered/Resolved]
  - Poor quality sleep [Recovered/Resolved]
  - Mood swings [Recovered/Resolved]
  - Vertigo [Recovered/Resolved]
  - Nightmare [Recovered/Resolved]
  - Ovarian cyst [Recovered/Resolved]
  - Loss of libido [Recovered/Resolved]
  - Fungal infection [Recovered/Resolved]
  - Middle insomnia [Recovered/Resolved]
  - Depression [Recovered/Resolved]
  - Breast pain [Recovered/Resolved]
  - Negative thoughts [Recovered/Resolved]
  - Memory impairment [Recovered/Resolved]
  - Back pain [Recovered/Resolved]
  - Irritability [Recovered/Resolved]
  - Weight increased [Recovered/Resolved]
  - Headache [Recovered/Resolved]
  - Blood pressure increased [Recovered/Resolved]

NARRATIVE: CASE EVENT DATE: 2013
